FAERS Safety Report 9049403 (Version 1)
Quarter: 2013Q1

REPORT INFORMATION
  Report Type: Spontaneous
  Country: BR (occurrence: BR)
  Receive Date: 20130205
  Receipt Date: 20130205
  Transmission Date: 20140127
  Serious: Yes (Hospitalization, Other)
  Sender: FDA-Public Use
  Company Number: PHHY2012BR060599

PATIENT
  Sex: Female
  Weight: 68 kg

DRUGS (7)
  1. CATAFLAM [Suspect]
     Indication: TENDONITIS
     Dosage: 3 TABLETS DAILY
     Route: 048
     Dates: start: 1993, end: 1996
  2. CATAFLAM [Suspect]
     Indication: TENDONITIS
     Dosage: UNK UKN, UNK
     Route: 061
  3. ARCOXIA [Concomitant]
     Indication: TOOTH EXTRACTION
     Dosage: UNK UKN, Q8H
  4. MIOSAN [Concomitant]
     Indication: PAIN
     Dosage: UNK UKN, UNK
  5. NORFLOXACIN [Concomitant]
     Indication: PAIN
     Dosage: UNK UKN, UNK
  6. SYNVISC [Concomitant]
     Indication: MENISCUS REMOVAL
     Dosage: UNK UKN, UNK
  7. ATORVASTATIN [Concomitant]
     Indication: BLOOD CHOLESTEROL
     Dosage: 1 DF, QD
     Route: 048

REACTIONS (11)
  - Hiatus hernia [Not Recovered/Not Resolved]
  - Abdominal discomfort [Not Recovered/Not Resolved]
  - Abdominal pain upper [Unknown]
  - Gastrooesophageal reflux disease [Recovering/Resolving]
  - Oesophagitis [Not Recovered/Not Resolved]
  - Oesophageal injury [Unknown]
  - Chest pain [Not Recovered/Not Resolved]
  - Pain [Unknown]
  - Arthralgia [Unknown]
  - Back pain [Unknown]
  - Chondropathy [Not Recovered/Not Resolved]
